FAERS Safety Report 4443937-X (Version None)
Quarter: 2004Q3

REPORT INFORMATION
  Report Type: 
  Country: None (occurrence: None)
  Receive Date: 20040908
  Receipt Date: 20040831
  Transmission Date: 20050211
  Serious: Yes (Hospitalization)
  Sender: FDA-Public Use
  Company Number: PHBS2004ES11803

PATIENT
  Age: 75 Year
  Sex: Male

DRUGS (2)
  1. ACENOCOUMAROL [Suspect]
     Indication: ARRHYTHMIA
     Dosage: UNK, QD
     Route: 065
  2. DICLOFENAC [Suspect]
     Indication: ARTHRALGIA
     Route: 065

REACTIONS (11)
  - BLOOD CREATININE INCREASED [None]
  - BLOOD UREA INCREASED [None]
  - ECCHYMOSIS [None]
  - ESCHAR [None]
  - HAEMATURIA [None]
  - INTERNATIONAL NORMALISED RATIO INCREASED [None]
  - PETECHIAE [None]
  - RENAL IMPAIRMENT [None]
  - SKIN NECROSIS [None]
  - SKIN ULCER [None]
  - THROMBOSIS [None]
